FAERS Safety Report 7104739-9 (Version None)
Quarter: 2010Q4

REPORT INFORMATION
  Report Type: 
  Country: None (occurrence: None)
  Receive Date: 20101109
  Receipt Date: 20101027
  Transmission Date: 20110411
  Serious: Yes (Life-Threatening)
  Sender: FDA-Public Use
  Company Number: TR-004025

PATIENT
  Age: 25 Year
  Sex: Female

DRUGS (2)
  1. UROFOLLITROPIN [Suspect]
     Indication: IN VITRO FERTILISATION
  2. HCG (CHORIONGONADOTROPHIN) [Suspect]
     Indication: IN VITRO FERTILISATION

REACTIONS (3)
  - CEREBRAL INFARCTION [None]
  - INTRACRANIAL VENOUS SINUS THROMBOSIS [None]
  - OVARIAN HYPERSTIMULATION SYNDROME [None]
